FAERS Safety Report 4399859-6 (Version None)
Quarter: 2004Q3

REPORT INFORMATION
  Report Type: 
  Country: None (occurrence: None)
  Receive Date: 20040714
  Receipt Date: 20040630
  Transmission Date: 20050211
  Serious: Yes (Other)
  Sender: FDA-Public Use
  Company Number: US_0407103968

PATIENT
  Age: 17 Year
  Sex: Male

DRUGS (1)
  1. SOMATROPIN [Suspect]
     Indication: BODY HEIGHT BELOW NORMAL

REACTIONS (7)
  - HYPOGONADISM MALE [None]
  - PENIS DISORDER [None]
  - PRIMARY HYPOGONADISM [None]
  - SPERMATOGENESIS ABNORMAL [None]
  - SPERMATOZOA PROGRESSIVE MOTILITY DECREASED [None]
  - TESTICULAR ATROPHY [None]
  - TESTICULAR DISORDER [None]
